FAERS Safety Report 20404397 (Version 1)
Quarter: 2022Q1

REPORT INFORMATION
  Report Type: Spontaneous
  Country: US (occurrence: US)
  Receive Date: 20220131
  Receipt Date: 20220131
  Transmission Date: 20220423
  Serious: No
  Sender: FDA-Public Use
  Company Number: US-SA-SAC20220127001360

PATIENT
  Age: 80 Year
  Sex: Female

DRUGS (27)
  1. DUPIXENT [Suspect]
     Active Substance: DUPILUMAB
     Indication: Asthma
     Dosage: 300 MG, QOW
     Route: 058
     Dates: start: 20210121
  2. ALBUTEROL SULFATE [Concomitant]
     Active Substance: ALBUTEROL SULFATE
     Indication: Asthma
     Dosage: 125MG
  3. ALBUTEROL SULFATE [Concomitant]
     Active Substance: ALBUTEROL SULFATE
  4. CARVEDILOL [Concomitant]
     Active Substance: CARVEDILOL
     Dosage: 12.5MG
  5. CARVEDILOL [Concomitant]
     Active Substance: CARVEDILOL
  6. CLOTRIMAZOLE [Concomitant]
     Active Substance: CLOTRIMAZOLE
     Dosage: 10MG
  7. CLOTRIMAZOLE [Concomitant]
     Active Substance: CLOTRIMAZOLE
  8. ELIQUIS [Concomitant]
     Active Substance: APIXABAN
     Dosage: 5MG
  9. ELIQUIS [Concomitant]
     Active Substance: APIXABAN
  10. ESTRADIOL [Concomitant]
     Active Substance: ESTRADIOL
     Dosage: 2MG
  11. ESTRADIOL [Concomitant]
     Active Substance: ESTRADIOL
  12. EPLERENONE [Concomitant]
     Active Substance: EPLERENONE
     Dosage: 25MG
  13. EPLERENONE [Concomitant]
     Active Substance: EPLERENONE
  14. FLUTICASONE [Concomitant]
     Active Substance: FLUTICASONE
     Dosage: 50 MG,FLUTICASONE SPR 50MCG
  15. FUROSEMIDE [Concomitant]
     Active Substance: FUROSEMIDE
     Dosage: 40MG
  16. FUROSEMIDE [Concomitant]
     Active Substance: FUROSEMIDE
  17. LOSARTAN [Concomitant]
     Active Substance: LOSARTAN
     Dosage: 50MG
  18. MONTELUKAST SODIUM [Concomitant]
     Active Substance: MONTELUKAST SODIUM
     Indication: Asthma
     Dosage: 50MG
  19. MONTELUKAST SODIUM [Concomitant]
     Active Substance: MONTELUKAST SODIUM
  20. POTASSIUM CHLORIDE [Concomitant]
     Active Substance: POTASSIUM CHLORIDE
     Dosage: 125MG
  21. POTASSIUM CHLORIDE [Concomitant]
     Active Substance: POTASSIUM CHLORIDE
  22. PREMARIN [Concomitant]
     Active Substance: ESTROGENS, CONJUGATED
     Dosage: 1.25MG
  23. PREMARIN [Concomitant]
     Active Substance: ESTROGENS, CONJUGATED
  24. SPIRIVA [Concomitant]
     Active Substance: TIOTROPIUM BROMIDE MONOHYDRATE
     Dosage: UNK
  25. LEVOTHYROXINE [Concomitant]
     Active Substance: LEVOTHYROXINE
     Dosage: 112 MCG, TABLET
  26. LOSARTAN POTASSIUM [Concomitant]
     Active Substance: LOSARTAN POTASSIUM
     Dosage: 50 MG
  27. SPIRIVA [Concomitant]
     Active Substance: TIOTROPIUM BROMIDE MONOHYDRATE
     Dosage: UNK

REACTIONS (2)
  - Asthma [Not Recovered/Not Resolved]
  - Quality of life decreased [Not Recovered/Not Resolved]
